FAERS Safety Report 5218104-2 (Version None)
Quarter: 2007Q1

REPORT INFORMATION
  Report Type: 
  Country: None (occurrence: None)
  Receive Date: 20061130
  Receipt Date: 20060620
  Transmission Date: 20070707
  Serious: Yes (Hospitalization)
  Sender: FDA-Public Use
  Company Number: US200605004052

PATIENT
  Age: 48 Year
  Sex: Male
  Weight: 86.2 kg

DRUGS (4)
  1. ZYPREXA [Suspect]
     Dosage: SEE IMAGE
     Dates: start: 19990520, end: 20000601
  2. ZYPREXA [Suspect]
     Dosage: SEE IMAGE
     Dates: start: 20001101, end: 20010801
  3. ZYPREXA [Suspect]
     Dosage: SEE IMAGE
     Dates: start: 20010901, end: 20030301
  4. ZYPREXA [Suspect]
     Dosage: SEE IMAGE
     Dates: start: 20030325, end: 20030524

REACTIONS (2)
  - DIABETES MELLITUS [None]
  - WEIGHT INCREASED [None]
